FAERS Safety Report 12216316 (Version 1)
Quarter: 2016Q1

REPORT INFORMATION
  Report Type: Spontaneous
  Country: IT (occurrence: IT)
  Receive Date: 20160329
  Receipt Date: 20160329
  Transmission Date: 20160526
  Serious: Yes (Other)
  Sender: FDA-Public Use
  Company Number: IT-ACCORD-039173

PATIENT
  Age: 84 Year
  Sex: Female

DRUGS (5)
  1. TACHIDOL [Concomitant]
     Active Substance: ACETAMINOPHEN\CODEINE PHOSPHATE
     Dosage: STRENGTH: 500 MG/30 MG
     Route: 048
  2. TACHIPIRINA [Concomitant]
     Active Substance: ACETAMINOPHEN
     Dosage: STRENGTH: 1000 MG
     Route: 048
  3. SEREPRILE [Concomitant]
     Active Substance: TIAPRIDE HYDROCHLORIDE
     Dosage: STRENGTH: 100 MG
     Route: 048
  4. DELORAZEPAM [Concomitant]
     Active Substance: DELORAZEPAM
     Route: 048
  5. LEVETIRACETAM ACCORD [Suspect]
     Active Substance: LEVETIRACETAM
     Indication: EPILEPSY
     Dosage: STRENGTH: 500 MG
     Route: 048
     Dates: start: 20160115

REACTIONS (2)
  - Seizure [Unknown]
  - Drug ineffective [Unknown]

NARRATIVE: CASE EVENT DATE: 20160216
